FAERS Safety Report 4434497-8 (Version None)
Quarter: 2004Q3

REPORT INFORMATION
  Report Type: 
  Country: None (occurrence: None)
  Receive Date: 20040726
  Receipt Date: 20040413
  Transmission Date: 20050211
  Serious: No
  Sender: FDA-Public Use
  Company Number: USA040464913

PATIENT
  Age: 55 Year
  Sex: Male

DRUGS (6)
  1. FORTEO [Suspect]
     Indication: OSTEOPOROSIS
     Dosage: 20 UG
     Dates: start: 20040411
  2. PREDNISONE [Concomitant]
  3. LIPRAM (PANCRELIPASE) [Concomitant]
  4. PRILOSEC [Concomitant]
  5. VITAMIN B-12 [Concomitant]
  6. MULTIVITAMIN [Concomitant]

REACTIONS (1)
  - INJECTION SITE ERYTHEMA [None]
